FAERS Safety Report 7302261-8 (Version None)
Quarter: 2011Q1

REPORT INFORMATION
  Report Type: 
  Country: None (occurrence: None)
  Receive Date: 20110218
  Receipt Date: 20110211
  Transmission Date: 20110831
  Serious: Yes (Other)
  Sender: FDA-Public Use
  Company Number: US-AMGEN-USASP2011008482

PATIENT
  Age: 57 Year
  Sex: Female

DRUGS (1)
  1. ENBREL [Suspect]
     Indication: RHEUMATOID ARTHRITIS
     Dosage: 50 MG, QWK
     Dates: start: 20090601

REACTIONS (4)
  - THERAPEUTIC RESPONSE DECREASED [None]
  - INCORRECT DOSE ADMINISTERED BY DEVICE [None]
  - RHEUMATOID ARTHRITIS [None]
  - LETHARGY [None]
